FAERS Safety Report 25137583 (Version 1)
Quarter: 2025Q1

REPORT INFORMATION
  Report Type: Report from Study
  Country: US (occurrence: US)
  Receive Date: 20250329
  Receipt Date: 20250329
  Transmission Date: 20250409
  Serious: No
  Sender: DR REDDYS
  Company Number: US-DRL-USA-USA/2025/03/004442

PATIENT
  Sex: Male
  Weight: 29.71 kg

DRUGS (6)
  1. JAVYGTOR [Suspect]
     Active Substance: SAPROPTERIN DIHYDROCHLORIDE
     Indication: Phenylketonuria
     Route: 048
  2. JAVYGTOR [Suspect]
     Active Substance: SAPROPTERIN DIHYDROCHLORIDE
     Indication: Hyperphenylalaninaemia
  3. Vitamin D-400 10 mcg tablet [Concomitant]
     Indication: Product used for unknown indication
     Route: 065
  4. Melatonin 10 mg capsule [Concomitant]
     Indication: Product used for unknown indication
     Route: 065
  5. CLONIDINE HYDROCHLORIDE [Concomitant]
     Active Substance: CLONIDINE HYDROCHLORIDE
     Indication: Product used for unknown indication
     Route: 065
  6. Concerta 18 mg tablet [Concomitant]
     Indication: Product used for unknown indication
     Route: 065

REACTIONS (1)
  - Streptococcal infection [Unknown]
